FAERS Safety Report 18665049 (Version 6)
Quarter: 2022Q4

REPORT INFORMATION
  Report Type: Report from Study
  Country: US (occurrence: US)
  Receive Date: 20201225
  Receipt Date: 20221209
  Transmission Date: 20230112
  Serious: Yes (Hospitalization, Other)
  Sender: FDA-Public Use
  Company Number: US-SHIRE-US202033118

PATIENT
  Sex: Female
  Weight: 81 kg

DRUGS (42)
  1. HUMAN IMMUNOGLOBULIN G [Suspect]
     Active Substance: HUMAN IMMUNOGLOBULIN G
     Indication: Immunodeficiency common variable
     Dosage: 30 GRAM, Q3WEEKS
     Route: 042
     Dates: start: 20090930
  2. HUMAN IMMUNOGLOBULIN G [Suspect]
     Active Substance: HUMAN IMMUNOGLOBULIN G
     Dosage: 30 GRAM, Q3WEEKS
     Route: 042
     Dates: start: 20190916
  3. FLUAD NOS [Concomitant]
     Active Substance: INFLUENZA VIRUS VACCINE
     Dosage: UNK
     Route: 065
  4. NORCO [Concomitant]
     Active Substance: ACETAMINOPHEN\HYDROCODONE BITARTRATE
  5. VENTOLIN HFA [Concomitant]
     Active Substance: ALBUTEROL SULFATE
  6. GABAPENTIN [Concomitant]
     Active Substance: GABAPENTIN
  7. NYSTATIN [Concomitant]
     Active Substance: NYSTATIN
  8. WIXELA INHUB [Concomitant]
     Active Substance: FLUTICASONE PROPIONATE\SALMETEROL XINAFOATE
  9. BIOFREEZE [Concomitant]
     Active Substance: MENTHOL
  10. CANNABIDIOL [Concomitant]
     Active Substance: CANNABIDIOL
  11. ACETAMINOPHEN [Concomitant]
     Active Substance: ACETAMINOPHEN
  12. DIPHENHYDRAMINE [Concomitant]
     Active Substance: DIPHENHYDRAMINE
  13. EPINEPHRINE [Concomitant]
     Active Substance: EPINEPHRINE
  14. LIDOCAINE [Concomitant]
     Active Substance: LIDOCAINE
  15. SODIUM CHLORIDE [Concomitant]
     Active Substance: SODIUM CHLORIDE
  16. FOSAMAX [Concomitant]
     Active Substance: ALENDRONATE SODIUM
  17. PREMPRO [Concomitant]
     Active Substance: ESTROGENS, CONJUGATED\MEDROXYPROGESTERONE ACETATE
  18. LASIX [Concomitant]
     Active Substance: FUROSEMIDE
  19. ATORVASTATIN [Concomitant]
     Active Substance: ATORVASTATIN
  20. OMEPRAZOLE [Concomitant]
     Active Substance: OMEPRAZOLE
  21. COMBIVENT [Concomitant]
     Active Substance: ALBUTEROL SULFATE\IPRATROPIUM BROMIDE
  22. LOSARTAN [Concomitant]
     Active Substance: LOSARTAN
  23. CALCIUM PLUS D3 [Concomitant]
  24. MAGNESIUM [Concomitant]
     Active Substance: MAGNESIUM
  25. METFORMIN [Concomitant]
     Active Substance: METFORMIN HYDROCHLORIDE
  26. IPRATROPIUM [Concomitant]
     Active Substance: IPRATROPIUM
  27. FAMOTIDINE [Concomitant]
     Active Substance: FAMOTIDINE
  28. PREDNISONE [Concomitant]
     Active Substance: PREDNISONE
  29. VERAPAMIL [Concomitant]
     Active Substance: VERAPAMIL HYDROCHLORIDE
  30. KLOR-CON [Concomitant]
     Active Substance: POTASSIUM CHLORIDE
  31. METOLAZONE [Concomitant]
     Active Substance: METOLAZONE
  32. AMILORIDE [Concomitant]
     Active Substance: AMILORIDE
  33. JARDIANCE [Concomitant]
     Active Substance: EMPAGLIFLOZIN
  34. CLOPIDOGREL BISULFATE [Concomitant]
     Active Substance: CLOPIDOGREL BISULFATE
  35. FLUBLOK QUADRIVALENT NOS [Concomitant]
     Active Substance: INFLUENZA VIRUS VACCINE
  36. TYLENOL [Concomitant]
     Active Substance: ACETAMINOPHEN
  37. ALBUTEROL [Concomitant]
     Active Substance: ALBUTEROL
  38. SHINGRIX [Concomitant]
     Active Substance: RECOMBINANT VARICELLA ZOSTER VIRUS (VZV) GLYCOPROTEIN E
  39. ASPIRIN [Concomitant]
     Active Substance: ASPIRIN
  40. BIOFREEZE [Concomitant]
     Active Substance: MENTHOL
  41. FOSAMAX [Concomitant]
     Active Substance: ALENDRONATE SODIUM
  42. COMBIVENT RESPIMAT [Concomitant]
     Active Substance: ALBUTEROL SULFATE\IPRATROPIUM BROMIDE

REACTIONS (7)
  - Pneumonia [Unknown]
  - Cataract [Unknown]
  - Diabetes mellitus [Unknown]
  - Cardiac failure [Unknown]
  - Arthritis [Unknown]
  - COVID-19 [Not Recovered/Not Resolved]
  - Chronic obstructive pulmonary disease [Unknown]

NARRATIVE: CASE EVENT DATE: 20200101
